FAERS Safety Report 8143735-X (Version None)
Quarter: 2012Q1

REPORT INFORMATION
  Report Type: 
  Country: None (occurrence: None)
  Receive Date: 20120103
  Receipt Date: 20111007
  Transmission Date: 20120608
  Serious: No
  Sender: FDA-Public Use
  Company Number: AE-2011-002135

PATIENT
  Age: 58 Year
  Sex: Female

DRUGS (3)
  1. RIBAVIRIN [Concomitant]
  2. PEGASYS [Concomitant]
  3. INCIVEK [Suspect]
     Dosage: 2250 MG (750 MG, 3 IN 1 D), ORAL
     Route: 048

REACTIONS (5)
  - HEADACHE [None]
  - GASTRIC DISORDER [None]
  - RASH [None]
  - DIARRHOEA [None]
  - ASTHENIA [None]
